FAERS Safety Report 9499582 (Version 1)
Quarter: 2013Q1

REPORT INFORMATION
  Report Type: Spontaneous
  Country: US (occurrence: None)
  Receive Date: 20130124
  Receipt Date: 20130124
  Transmission Date: 20140127
  Serious: No
  Sender: FDA-Public Use
  Company Number: 2012PROUSA02046

PATIENT
  Age: 74 Year
  Sex: Male
  Weight: 88.7 kg

DRUGS (1)
  1. PROVENGE (SIPULEUCEL-T) SUSPENSION, 250 ML [Suspect]
     Indication: PROSTATE CANCER METASTATIC
     Dosage: 250ML, SINGLE INTRAVENOUS
     Route: 042
     Dates: start: 20110930, end: 20110930

REACTIONS (6)
  - Disease progression [None]
  - Nephrolithiasis [None]
  - Muscular weakness [None]
  - Arthralgia [None]
  - Oedema peripheral [None]
  - Decreased appetite [None]
